FAERS Safety Report 10948122 (Version 1)
Quarter: 2015Q1

REPORT INFORMATION
  Report Type: Spontaneous
  Country: US (occurrence: None)
  Receive Date: 20150225
  Receipt Date: 20150225
  Transmission Date: 20150721
  Serious: Yes (Hospitalization)
  Sender: FDA-Public Use
  Company Number: 2014-US-003254

PATIENT
  Age: 81 Year
  Sex: Male
  Weight: 86.2 kg

DRUGS (13)
  1. PRIALT [Suspect]
     Active Substance: ZICONOTIDE ACETATE
     Indication: SPINAL OSTEOARTHRITIS
     Dosage: 0.093 UG, QH INTRATHECAL
     Route: 037
     Dates: start: 20140123, end: 20140226
  2. METHADONE HYDROCHLORIDE. [Concomitant]
     Active Substance: METHADONE HYDROCHLORIDE
  3. MIRALAX (MACROGOL) [Concomitant]
  4. GABAPENTIN. [Concomitant]
     Active Substance: GABAPENTIN
  5. AMBIEN [Concomitant]
     Active Substance: ZOLPIDEM TARTRATE
  6. PREVACID [Concomitant]
     Active Substance: LANSOPRAZOLE
  7. FOSAMAX [Concomitant]
     Active Substance: ALENDRONATE SODIUM
  8. LIPITOR [Concomitant]
     Active Substance: ATORVASTATIN CALCIUM
  9. LEVOTHYRXOINE SODIUM [Concomitant]
  10. SALASLATE [Concomitant]
  11. VITAMIN D (ERGOCALCIFEROL) [Concomitant]
     Active Substance: ERGOCALCIFEROL
  12. ACTOS [Concomitant]
     Active Substance: PIOGLITAZONE HYDROCHLORIDE
  13. LISINOPRIL. [Concomitant]
     Active Substance: LISINOPRIL

REACTIONS (7)
  - Cardiac septal defect [None]
  - Dyspnoea [None]
  - Red blood cell abnormality [None]
  - Cerebrovascular accident [None]
  - Burning sensation [None]
  - Formication [None]
  - Back pain [None]

NARRATIVE: CASE EVENT DATE: 20140130
